FAERS Safety Report 21243062 (Version 1)
Quarter: 2022Q3

REPORT INFORMATION
  Report Type: Spontaneous
  Country: GB (occurrence: GB)
  Receive Date: 20220823
  Receipt Date: 20220823
  Transmission Date: 20221027
  Serious: Yes (Hospitalization)
  Sender: FDA-Public Use
  Company Number: GB-TAKEDA-2021TUS015120

PATIENT

DRUGS (8)
  1. ACYCLOVIR [Suspect]
     Active Substance: ACYCLOVIR
     Indication: Product used for unknown indication
     Dosage: 400 MG, BID (800 MILLIGRAM)
     Route: 065
  2. METOCLOPRAMIDE [Suspect]
     Active Substance: METOCLOPRAMIDE
     Indication: Product used for unknown indication
     Dosage: 10 MG, QD
     Route: 065
  3. DEXAMETHASONE [Suspect]
     Active Substance: DEXAMETHASONE
     Indication: Plasma cell myeloma refractory
     Dosage: 10 MG
     Route: 065
     Dates: start: 201805
  4. IXAZOMIB [Suspect]
     Active Substance: IXAZOMIB
     Indication: Plasma cell myeloma refractory
     Dosage: 2.3 MG (UNK)
     Route: 048
     Dates: start: 201805
  5. REVLIMID [Suspect]
     Active Substance: LENALIDOMIDE
     Indication: Plasma cell myeloma refractory
     Dosage: 10 MILLIGRAM, EVERY 3 WK
     Route: 048
  6. REVLIMID [Suspect]
     Active Substance: LENALIDOMIDE
     Dosage: 10 MG, QD
     Route: 065
     Dates: start: 201805
  7. DEXAMETHASONE [Concomitant]
     Active Substance: DEXAMETHASONE
     Indication: Product used for unknown indication
     Dosage: 10 MG (10 MILLIGRAM;)
     Route: 065
  8. LOPERAMIDE [Concomitant]
     Active Substance: LOPERAMIDE
     Indication: Product used for unknown indication
     Dosage: 2 MG (2 MILLIGRAM;)
     Route: 065

REACTIONS (6)
  - Panic attack [Not Recovered/Not Resolved]
  - Chronic obstructive pulmonary disease [Unknown]
  - Swelling [Unknown]
  - Product dose omission issue [Unknown]
  - Peripheral swelling [Unknown]
  - Pain [Not Recovered/Not Resolved]
